FAERS Safety Report 8514887-4 (Version None)
Quarter: 2012Q3

REPORT INFORMATION
  Report Type: 
  Country: None (occurrence: None)
  Receive Date: 20120717
  Receipt Date: 20120712
  Transmission Date: 20120928
  Serious: Yes (Other)
  Sender: FDA-Public Use
  Company Number: BR-PFIZER INC-2012169330

PATIENT
  Age: 73 Year
  Sex: Female

DRUGS (5)
  1. VARENICLINE TARTRATE [Suspect]
     Indication: TOBACCO USER
     Dosage: 0.5MG, UNK
     Route: 048
     Dates: start: 20120627, end: 20120101
  2. LEVOTHYROXINE SODIUM [Concomitant]
     Indication: HORMONE REPLACEMENT THERAPY
     Dosage: 75 MG, 1X/DAY
     Dates: start: 20100101
  3. SIMVASTATIN [Concomitant]
     Indication: BLOOD CHOLESTEROL
     Dosage: 10 MG, 1X/DAY
     Dates: start: 20100101
  4. METFORMIN [Concomitant]
     Indication: DIABETES MELLITUS MANAGEMENT
     Dosage: 500 MG, 2X/DAY
     Dates: start: 20100101
  5. VARENICLINE TARTRATE [Suspect]
     Dosage: 1.0 MG, UNK
     Dates: start: 20120101, end: 20120712

REACTIONS (7)
  - DELIRIUM [None]
  - VOMITING [None]
  - DECREASED APPETITE [None]
  - FEELING ABNORMAL [None]
  - DEPRESSED MOOD [None]
  - SOMNOLENCE [None]
  - POOR QUALITY SLEEP [None]
